FAERS Safety Report 16110918 (Version 1)
Quarter: 2019Q1

REPORT INFORMATION
  Report Type: Spontaneous
  Country: US (occurrence: US)
  Receive Date: 20190220
  Receipt Date: 20190220
  Transmission Date: 20190418
  Serious: Yes (Hospitalization)
  Sender: FDA-Public Use
  Company Number: None

PATIENT
  Age: 58 Year
  Sex: Female

DRUGS (1)
  1. AFINITOR [Suspect]
     Active Substance: EVEROLIMUS
     Dates: start: 20190125, end: 20190210

REACTIONS (4)
  - Headache [None]
  - Back pain [None]
  - Hepatic enzyme increased [None]
  - Abdominal pain [None]

NARRATIVE: CASE EVENT DATE: 20190206
